FAERS Safety Report 16976748 (Version 1)
Quarter: 2019Q4

REPORT INFORMATION
  Report Type: Report from Study
  Country: US (occurrence: US)
  Receive Date: 20191030
  Receipt Date: 20191030
  Transmission Date: 20200122
  Serious: Yes (Hospitalization)
  Sender: FDA-Public Use
  Company Number: US-PFIZER INC-2019455300

PATIENT
  Age: 82 Year
  Sex: Female
  Weight: 47.3 kg

DRUGS (2)
  1. PALBOCICLIB [Suspect]
     Active Substance: PALBOCICLIB
     Indication: MANTLE CELL LYMPHOMA
     Dosage: 100 MG PO QD ON DAYS 1-21, CYCLE=28 DAYS
     Route: 048
     Dates: start: 20150908, end: 20190903
  2. IBRUTINIB [Suspect]
     Active Substance: IBRUTINIB
     Dosage: 420 MG PO QD
     Route: 048
     Dates: start: 20150908, end: 20190903

REACTIONS (2)
  - Mental status changes [Recovered/Resolved]
  - Pyrexia [Recovered/Resolved]

NARRATIVE: CASE EVENT DATE: 20190903
